FAERS Safety Report 21245061 (Version 1)
Quarter: 2022Q3

REPORT INFORMATION
  Report Type: Report from Study
  Country: BR (occurrence: BR)
  Receive Date: 20220823
  Receipt Date: 20220823
  Transmission Date: 20221027
  Serious: Yes (Disabling)
  Sender: FDA-Public Use
  Company Number: BR-ABBVIE-22K-020-4510889-00

PATIENT
  Sex: Female
  Weight: 117 kg

DRUGS (1)
  1. SKYRIZI [Suspect]
     Active Substance: RISANKIZUMAB-RZAA
     Indication: Psoriasis
     Dosage: WEEK 0, WEEK 4, AND EACH 12 WEEKS
     Route: 058

REACTIONS (3)
  - Bedridden [Not Recovered/Not Resolved]
  - Spinal pain [Not Recovered/Not Resolved]
  - Coccydynia [Not Recovered/Not Resolved]
